FAERS Safety Report 8056946 (Version 6)
Quarter: 2012Q4

REPORT INFORMATION
  Report Type: 
  Country: US (occurrence: US)
  Receive Date: 20110727
  Receipt Date: 20121212
  Transmission Date: 20130627
  Serious: Yes (Hospitalization, Other)
  Sender: FDA-Public Use
  Company Number: US-MSD-1107USA03268

PATIENT

DRUGS (2)
  1. FOSAMAX [Suspect]
     Indication: OSTEOPOROSIS
     Dosage: 70 mg, qw
     Route: 048
     Dates: end: 201009
  2. ALENDRONATE SODIUM [Suspect]
     Dosage: 70 mg, UNK
     Dates: start: 20080310

REACTIONS (25)
  - Femur fracture [Unknown]
  - None [Unknown]
  - Appendicectomy [Unknown]
  - Cholecystectomy [Unknown]
  - Tonsillectomy [Unknown]
  - Intervertebral discitis [Unknown]
  - Osteomyelitis [Unknown]
  - Clostridium difficile colitis [Unknown]
  - Ear operation [Unknown]
  - Femur fracture [Unknown]
  - Hypertension [Unknown]
  - Dementia [Unknown]
  - Blood cholesterol increased [Unknown]
  - Sciatica [Unknown]
  - Osteoarthritis [Unknown]
  - Urinary tract infection [Unknown]
  - Oesophageal disorder [Unknown]
  - Depression [Unknown]
  - Arthritis [Unknown]
  - Glaucoma [Unknown]
  - Fall [Unknown]
  - Insomnia [Unknown]
  - Hypokalaemia [Unknown]
  - Gastritis [Unknown]
  - Gastrooesophageal reflux disease [Unknown]
